FAERS Safety Report 17115551 (Version 1)
Quarter: 2019Q4

REPORT INFORMATION
  Report Type: Spontaneous
  Country: PT (occurrence: PT)
  Receive Date: 20191205
  Receipt Date: 20191205
  Transmission Date: 20200122
  Serious: Yes (Other)
  Sender: FDA-Public Use
  Company Number: PT-MYLANLABS-2019M1120101

PATIENT
  Age: 42 Year
  Sex: Male

DRUGS (4)
  1. CISPLATIN. [Suspect]
     Active Substance: CISPLATIN
     Indication: SQUAMOUS CELL CARCINOMA OF THE ORAL CAVITY
     Dosage: (AS A PART OF EXTREME REGIMEN)
     Route: 065
     Dates: start: 2014
  2. FLUOROURACIL. [Suspect]
     Active Substance: FLUOROURACIL
     Indication: SQUAMOUS CELL CARCINOMA OF THE ORAL CAVITY
     Dosage: (AS A PART OF EXTREME REGIMEN)
     Route: 065
     Dates: start: 2014
  3. CETUXIMAB. [Suspect]
     Active Substance: CETUXIMAB
     Indication: SQUAMOUS CELL CARCINOMA OF THE ORAL CAVITY
     Dosage: LOADING DOSE
     Route: 065
     Dates: start: 2014
  4. CETUXIMAB. [Suspect]
     Active Substance: CETUXIMAB
     Dosage: ON DAY 1 EVERY THREE WEEKS
     Route: 065
     Dates: start: 2014

REACTIONS (2)
  - Rash [Unknown]
  - Hypomagnesaemia [Unknown]

NARRATIVE: CASE EVENT DATE: 2014
